FAERS Safety Report 5378093-7 (Version None)
Quarter: 2007Q3

REPORT INFORMATION
  Report Type: 
  Country: None (occurrence: None)
  Receive Date: 20070702
  Receipt Date: 20070702
  Transmission Date: 20080115
  Serious: Yes (Hospitalization)
  Sender: FDA-Public Use
  Company Number: None

PATIENT
  Age: 79 Year
  Sex: Female
  Weight: 59 kg

DRUGS (8)
  1. WARFARIN SODIUM [Suspect]
     Indication: ATRIAL FIBRILLATION
     Dosage: 5MG PO DAILY
     Route: 048
  2. ASPIRIN [Suspect]
     Dosage: 81 MG PO DAILY
     Route: 048
  3. ATENOLOL [Concomitant]
  4. ZOCOR [Concomitant]
  5. FOSAMAX [Concomitant]
  6. COZAAR [Concomitant]
  7. MULTI-VITAMIN [Concomitant]
  8. CALCIUM + VIT D [Concomitant]

REACTIONS (4)
  - DYSPHONIA [None]
  - INTERNATIONAL NORMALISED RATIO INCREASED [None]
  - OEDEMA MOUTH [None]
  - VAGINAL HAEMORRHAGE [None]
